FAERS Safety Report 19374060 (Version 4)
Quarter: 2023Q4

REPORT INFORMATION
  Report Type: Spontaneous
  Country: US (occurrence: US)
  Receive Date: 20210603
  Receipt Date: 20231103
  Transmission Date: 20240109
  Serious: Yes (Other)
  Sender: FDA-Public Use
  Company Number: US-GILEAD-2021-0534093

PATIENT
  Age: 48 Year
  Sex: Male
  Weight: 76.19 kg

DRUGS (57)
  1. TRUVADA [Suspect]
     Active Substance: EMTRICITABINE\TENOFOVIR DISOPROXIL FUMARATE
     Indication: HIV infection
     Dosage: UNK
     Route: 048
     Dates: start: 20091103, end: 20120306
  2. TRUVADA [Suspect]
     Active Substance: EMTRICITABINE\TENOFOVIR DISOPROXIL FUMARATE
     Dosage: UNK
     Route: 048
     Dates: start: 20120430, end: 201704
  3. TRUVADA [Suspect]
     Active Substance: EMTRICITABINE\TENOFOVIR DISOPROXIL FUMARATE
     Dosage: UNK
     Route: 048
     Dates: start: 20120430, end: 201702
  4. DESCOVY [Concomitant]
     Active Substance: EMTRICITABINE\TENOFOVIR ALAFENAMIDE FUMARATE
  5. EVOTAZ [Concomitant]
     Active Substance: ATAZANAVIR SULFATE\COBICISTAT
  6. AZELASTINE [Concomitant]
     Active Substance: AZELASTINE\AZELASTINE HYDROCHLORIDE
  7. AZITHROMYCIN [Concomitant]
     Active Substance: AZITHROMYCIN
  8. BACITRACIN [Concomitant]
     Active Substance: BACITRACIN
  9. BANOPHEN [Concomitant]
     Active Substance: DIPHENHYDRAMINE HYDROCHLORIDE
  10. BENADRYL [Concomitant]
     Active Substance: DIPHENHYDRAMINE HYDROCHLORIDE
  11. CEFADROXIL [Concomitant]
     Active Substance: CEFADROXIL
  12. CETIRIZINE [Concomitant]
     Active Substance: CETIRIZINE HYDROCHLORIDE
  13. CITALOPRAM HYDROBROMIDE [Concomitant]
     Active Substance: CITALOPRAM HYDROBROMIDE
  14. CLOTRIMAZOLE [Concomitant]
     Active Substance: CLOTRIMAZOLE
  15. CONDYLOX [Concomitant]
     Active Substance: PODOFILOX
  16. CYCLOBENZAPRINE [Concomitant]
     Active Substance: CYCLOBENZAPRINE
  17. DIPHENHYDRAMINE [Concomitant]
     Active Substance: DIPHENHYDRAMINE
  18. DIVALPROEX SODIUM [Concomitant]
     Active Substance: DIVALPROEX SODIUM
  19. DOCUSIL [Concomitant]
  20. DOXYCYCLINE [Concomitant]
     Active Substance: DOXYCYCLINE
  21. GABAPENTIN [Concomitant]
     Active Substance: GABAPENTIN
  22. GUAIFENESIN [Concomitant]
     Active Substance: GUAIFENESIN
  23. IBUPROFEN [Concomitant]
     Active Substance: IBUPROFEN
  24. IMIQUIMOD [Concomitant]
     Active Substance: IMIQUIMOD
  25. LACTULOSE [Concomitant]
     Active Substance: LACTULOSE
  26. LEVOCETIRIZINE [Concomitant]
     Active Substance: LEVOCETIRIZINE
  27. LOPERAMIDE [Concomitant]
     Active Substance: LOPERAMIDE
  28. LORATADINE [Concomitant]
     Active Substance: LORATADINE
  29. LORAZEPAM [Concomitant]
     Active Substance: LORAZEPAM
  30. NAPROXEN [Concomitant]
     Active Substance: NAPROXEN
  31. NASONEX [Concomitant]
     Active Substance: MOMETASONE FUROATE
  32. NORTRIPTYLINE [Concomitant]
     Active Substance: NORTRIPTYLINE
  33. NORVIR [Concomitant]
     Active Substance: RITONAVIR
  34. OLANZAPINE [Concomitant]
     Active Substance: OLANZAPINE
  35. OLOPATADINE [Concomitant]
     Active Substance: OLOPATADINE
  36. ONDANSETRON [Concomitant]
     Active Substance: ONDANSETRON
  37. OXYCODONE [Concomitant]
     Active Substance: OXYCODONE
  38. OXYMETAZOLINE [Concomitant]
     Active Substance: OXYMETAZOLINE
  39. PENICILLIN [Concomitant]
     Active Substance: PENICILLIN
  40. PROMETHAZINE [Concomitant]
     Active Substance: PROMETHAZINE HYDROCHLORIDE
  41. HIGH DENSITY POLYETHYLENE [Concomitant]
     Active Substance: HIGH DENSITY POLYETHYLENE
  42. PROPRANOLOL [Concomitant]
     Active Substance: PROPRANOLOL HYDROCHLORIDE
  43. PSEUDOEPHEDRINE [Concomitant]
     Active Substance: PSEUDOEPHEDRINE
  44. REYATAZ [Concomitant]
     Active Substance: ATAZANAVIR SULFATE
  45. RISPERIDONE [Concomitant]
     Active Substance: RISPERIDONE
  46. SERTRALINE [Concomitant]
     Active Substance: SERTRALINE HYDROCHLORIDE
  47. SILDENAFIL CITRATE [Concomitant]
     Active Substance: SILDENAFIL CITRATE
  48. SILTUSSIN [GUAIFENESIN] [Concomitant]
  49. SILVER SULFADIAZINE [Concomitant]
     Active Substance: SILVER SULFADIAZINE
  50. TACTINAL [Concomitant]
  51. TAMIFLU [Concomitant]
     Active Substance: OSELTAMIVIR PHOSPHATE
  52. THERA-M [Concomitant]
  53. TRAMADOL [Concomitant]
     Active Substance: TRAMADOL\TRAMADOL HYDROCHLORIDE
  54. TRAZODONE [Concomitant]
     Active Substance: TRAZODONE HYDROCHLORIDE
  55. VALACYCLOVIR [Concomitant]
     Active Substance: VALACYCLOVIR HYDROCHLORIDE
  56. VALTREX [Concomitant]
     Active Substance: VALACYCLOVIR HYDROCHLORIDE
  57. VITAMIN C [Concomitant]
     Active Substance: ASCORBIC ACID

REACTIONS (11)
  - Bipolar disorder [Not Recovered/Not Resolved]
  - Osteopenia [Not Recovered/Not Resolved]
  - Emotional distress [Not Recovered/Not Resolved]
  - Anhedonia [Not Recovered/Not Resolved]
  - Pain [Not Recovered/Not Resolved]
  - Anxiety [Not Recovered/Not Resolved]
  - Back pain [Unknown]
  - Tooth loss [Unknown]
  - Arthritis [Unknown]
  - General physical health deterioration [Not Recovered/Not Resolved]
  - Musculoskeletal stiffness [Unknown]

NARRATIVE: CASE EVENT DATE: 20190627
